FAERS Safety Report 8304229-1 (Version None)
Quarter: 2012Q2

REPORT INFORMATION
  Report Type: 
  Country: None (occurrence: None)
  Receive Date: 20120423
  Receipt Date: 20120418
  Transmission Date: 20120825
  Serious: No
  Sender: FDA-Public Use
  Company Number: US-B.I. PHARMACEUTICALS,INC./RIDGEFIELD-2012-BP-07380BP

PATIENT
  Sex: Male

DRUGS (3)
  1. SPIRIVA [Suspect]
     Indication: DYSPNOEA
     Dates: start: 20120401, end: 20120401
  2. COMBIVENT [Suspect]
     Indication: DYSPNOEA
     Dates: start: 20120301, end: 20120301
  3. ZITHROMAX [Concomitant]
     Indication: LUNG INFECTION

REACTIONS (1)
  - DYSPNOEA [None]
